FAERS Safety Report 25661884 (Version 1)
Quarter: 2025Q3

REPORT INFORMATION
  Report Type: Spontaneous
  Country: US (occurrence: US)
  Receive Date: 20250809
  Receipt Date: 20250809
  Transmission Date: 20251021
  Serious: Yes (Other)
  Sender: AMGEN
  Company Number: US-AMGEN-USASP2025154632

PATIENT
  Age: 61 Year
  Sex: Female
  Weight: 87 kg

DRUGS (29)
  1. TEPEZZA [Suspect]
     Active Substance: TEPROTUMUMAB-TRBW
     Indication: Endocrine ophthalmopathy
     Dosage: 873 MILLIGRAM, Q3WK, (FIRST INFUSION)
     Route: 040
     Dates: start: 20210623
  2. TEPEZZA [Suspect]
     Active Substance: TEPROTUMUMAB-TRBW
     Dosage: 1746 MILLIGRAM, Q3WK, (SEOND INFUSION)
     Route: 040
     Dates: start: 20210714
  3. TEPEZZA [Suspect]
     Active Substance: TEPROTUMUMAB-TRBW
     Dosage: 1746 MILLIGRAM, Q3WK, (THIRD INFUSION)
     Route: 040
     Dates: start: 20210804
  4. TEPEZZA [Suspect]
     Active Substance: TEPROTUMUMAB-TRBW
     Dosage: 1746 MILLIGRAM, Q3WK, (FOURTH INFUSION)
     Route: 040
     Dates: start: 20210825
  5. TEPEZZA [Suspect]
     Active Substance: TEPROTUMUMAB-TRBW
     Dosage: 1476 MILLIGRAM, Q3WK, (FIFTH INFUSION)
     Route: 040
     Dates: start: 20210915
  6. TEPEZZA [Suspect]
     Active Substance: TEPROTUMUMAB-TRBW
     Dosage: 1446 MILLIGRAM, Q3WK, (SIXTH INFUSION)
     Route: 040
     Dates: start: 20211006
  7. TEPEZZA [Suspect]
     Active Substance: TEPROTUMUMAB-TRBW
     Dosage: 1446 MILLIGRAM, Q3WK, (SEVENTH INFUSION)
     Route: 040
     Dates: start: 20211027
  8. TEPEZZA [Suspect]
     Active Substance: TEPROTUMUMAB-TRBW
     Dosage: 1446 MILLIGRAM, Q3WK, (EIGHT INFUSION)
     Route: 040
     Dates: start: 20211123
  9. PREDNISONE [Suspect]
     Active Substance: PREDNISONE
     Indication: Product used for unknown indication
     Dosage: 10 MILLIGRAM, QD
     Route: 048
     Dates: start: 202103
  10. PREDNISONE [Suspect]
     Active Substance: PREDNISONE
     Dosage: 50 MILLIGRAM, QD
     Route: 048
     Dates: start: 2021
  11. AMLODIPINE [Concomitant]
     Active Substance: AMLODIPINE BESYLATE
  12. AMOXICILLIN [Concomitant]
     Active Substance: AMOXICILLIN
  13. BACTRIM [Concomitant]
     Active Substance: SULFAMETHOXAZOLE\TRIMETHOPRIM
  14. CHANTIX [Concomitant]
     Active Substance: VARENICLINE TARTRATE
  15. CYCLOBENZAPRINE [Concomitant]
     Active Substance: CYCLOBENZAPRINE
  16. DOXYCYCLINE HYCLATE [Concomitant]
     Active Substance: DOXYCYCLINE HYCLATE
  17. ELIQUIS [Concomitant]
     Active Substance: APIXABAN
  18. HYDROXYZINE HYDROCHLORIDE [Concomitant]
     Active Substance: HYDROXYZINE HYDROCHLORIDE
  19. HYDROXYZINE PAMOATE [Concomitant]
     Active Substance: HYDROXYZINE PAMOATE
  20. LOPRESSOR [Concomitant]
     Active Substance: METOPROLOL TARTRATE
  21. LOSARTAN [Concomitant]
     Active Substance: LOSARTAN
  22. METHIMAZOLE [Concomitant]
     Active Substance: METHIMAZOLE
  23. METOPROLOL SUCCINATE [Concomitant]
     Active Substance: METOPROLOL SUCCINATE
  24. NEURONTIN [Concomitant]
     Active Substance: GABAPENTIN
  25. OLOPATADINE [Concomitant]
     Active Substance: OLOPATADINE
  26. SULFACETAMIDE SODIUM [Concomitant]
     Active Substance: SULFACETAMIDE SODIUM
  27. SELENIUM [Concomitant]
     Active Substance: SELENIUM
  28. NORVASC [Concomitant]
     Active Substance: AMLODIPINE BESYLATE
  29. COZAAR [Concomitant]
     Active Substance: LOSARTAN POTASSIUM

REACTIONS (18)
  - Endocrine ophthalmopathy [Unknown]
  - Diabetes mellitus [Unknown]
  - Chest pain [Unknown]
  - Palpitations [Unknown]
  - Electrocardiogram abnormal [Unknown]
  - Dyspnoea [Unknown]
  - Essential hypertension [Unknown]
  - Diastolic dysfunction [Unknown]
  - Abdominal pain [Unknown]
  - Platelet count increased [Unknown]
  - Neutrophil count increased [Unknown]
  - Lymphocyte percentage decreased [Unknown]
  - Monocyte percentage decreased [Unknown]
  - Eosinophil percentage decreased [Unknown]
  - Dysuria [Unknown]
  - Back pain [Unknown]
  - Dizziness [Unknown]
  - Headache [Unknown]

NARRATIVE: CASE EVENT DATE: 20220517
